FAERS Safety Report 16678189 (Version 4)
Quarter: 2024Q1

REPORT INFORMATION
  Report Type: Spontaneous
  Country: US (occurrence: US)
  Receive Date: 20190807
  Receipt Date: 20240220
  Transmission Date: 20240409
  Serious: No
  Sender: FDA-Public Use
  Company Number: US-PFIZER INC-2019333226

PATIENT
  Age: 67 Year
  Sex: Female

DRUGS (3)
  1. BOSULIF [Suspect]
     Active Substance: BOSUTINIB MONOHYDRATE
     Indication: Chronic myeloid leukaemia (in remission)
     Dosage: 100 MG, 4X/DAY
  2. BOSULIF [Suspect]
     Active Substance: BOSUTINIB MONOHYDRATE
     Dosage: 100 MG, ALTERNATE DAY
  3. BOSULIF [Suspect]
     Active Substance: BOSUTINIB MONOHYDRATE
     Dosage: TAKE 3 TABLETS BY MOUTH EVERY DAY WITH FOOD. DO NOT CRUSH OR CHEW. STORE AT ROOM TEMP.
     Route: 048

REACTIONS (3)
  - Intentional product misuse [Unknown]
  - Anaemia vitamin B12 deficiency [Unknown]
  - Dyspnoea [Unknown]
